FAERS Safety Report 9298780 (Version 1)
Quarter: 2013Q2

REPORT INFORMATION
  Report Type: Spontaneous
  Country: IE (occurrence: None)
  Receive Date: 20130515
  Receipt Date: 20130515
  Transmission Date: 20140414
  Serious: Yes (Hospitalization)
  Sender: FDA-Public Use
  Company Number: IE-20130002

PATIENT
  Age: 43 Year
  Sex: Female

DRUGS (1)
  1. DOTAREM [Suspect]
     Indication: SCAN
     Dosage: 1 IN 1 D, INTRAVENOUS ( NOT OTHERWISE SPECIFIED)
     Route: 042
     Dates: start: 20130411, end: 20130411

REACTIONS (2)
  - Rash [None]
  - Abdominal discomfort [None]
